FAERS Safety Report 22306413 (Version 1)
Quarter: 2023Q2

REPORT INFORMATION
  Report Type: Report from Study
  Country: IE (occurrence: IE)
  Receive Date: 20230511
  Receipt Date: 20230511
  Transmission Date: 20230722
  Serious: Yes (Hospitalization)
  Sender: FDA-Public Use
  Company Number: IE-002147023-NVSC2022IE286044

PATIENT
  Age: 60 Year
  Sex: Male

DRUGS (1)
  1. COSENTYX [Suspect]
     Active Substance: SECUKINUMAB
     Indication: Psoriatic arthropathy
     Dosage: 300 MG, QMO
     Route: 058
     Dates: start: 20221019

REACTIONS (4)
  - Sepsis [Unknown]
  - Illness [Unknown]
  - COVID-19 [Recovered/Resolved with Sequelae]
  - Lower respiratory tract infection [Unknown]

NARRATIVE: CASE EVENT DATE: 20221107
